FAERS Safety Report 17824899 (Version 1)
Quarter: 2020Q2

REPORT INFORMATION
  Report Type: Spontaneous
  Country: US (occurrence: US)
  Receive Date: 20200526
  Receipt Date: 20200526
  Transmission Date: 20200714
  Serious: Yes (Hospitalization)
  Sender: FDA-Public Use
  Company Number: None

PATIENT
  Age: 62 Year
  Sex: Female
  Weight: 116 kg

DRUGS (12)
  1. CHLORHEXIDINE 0.12% SOLUTION [Concomitant]
     Dates: start: 20200521, end: 20200524
  2. SENNOSIDES-DOCUSATE [Concomitant]
     Dates: start: 20200521, end: 20200524
  3. FAMOTIDINE. [Concomitant]
     Active Substance: FAMOTIDINE
     Dates: start: 20200521, end: 20200524
  4. IPRATROPIUM-ALBUTEROL [Concomitant]
     Active Substance: ALBUTEROL\IPRATROPIUM
     Dates: start: 20200521, end: 20200524
  5. ROCURONIUM [Concomitant]
     Active Substance: ROCURONIUM BROMIDE
     Dates: start: 20200521, end: 20200522
  6. HEPARIN [Concomitant]
     Active Substance: HEPARIN SODIUM
     Dates: start: 20200521, end: 20200524
  7. NOREPINEPHRINE. [Concomitant]
     Active Substance: NOREPINEPHRINE
     Dates: start: 20200521, end: 20200524
  8. REMDESIVIR EUA [Suspect]
     Active Substance: REMDESIVIR
     Indication: COVID-19 PNEUMONIA
     Route: 040
     Dates: start: 20200520, end: 20200522
  9. LORAZEPAM. [Concomitant]
     Active Substance: LORAZEPAM
     Dates: start: 20200521, end: 20200524
  10. ENOXAPARIN [Concomitant]
     Active Substance: ENOXAPARIN
     Dates: start: 20200518, end: 20200521
  11. MULTIVITAMIN [Concomitant]
     Active Substance: VITAMINS
     Dates: start: 20200521, end: 20200524
  12. HYDROMORPHONE [Concomitant]
     Active Substance: HYDROMORPHONE
     Dates: start: 20200521, end: 20200524

REACTIONS (2)
  - Blood creatinine increased [None]
  - Therapy cessation [None]

NARRATIVE: CASE EVENT DATE: 20200522
